FAERS Safety Report 19073606 (Version 2)
Quarter: 2021Q2

REPORT INFORMATION
  Report Type: Spontaneous
  Country: US (occurrence: US)
  Receive Date: 20210330
  Receipt Date: 20210414
  Transmission Date: 20210717
  Serious: Yes (Hospitalization, Other)
  Sender: FDA-Public Use
  Company Number: US-COLLEGIUM PHARMACEUTICAL, INC.-2021CGM00329

PATIENT
  Age: 69 Year
  Sex: Male
  Weight: 115.65 kg

DRUGS (13)
  1. METFORMIN [Concomitant]
     Active Substance: METFORMIN HYDROCHLORIDE
  2. ALBUTEROL. [Concomitant]
     Active Substance: ALBUTEROL
  3. OXYCODONE [Concomitant]
     Active Substance: OXYCODONE
  4. LISINOPRIL. [Concomitant]
     Active Substance: LISINOPRIL
  5. TYLENOL [Concomitant]
     Active Substance: ACETAMINOPHEN
  6. LEVOTHYROXINE. [Concomitant]
     Active Substance: LEVOTHYROXINE
  7. XTAMPZA ER [Suspect]
     Active Substance: OXYCODONE
     Indication: POLYMYALGIA RHEUMATICA
  8. XTAMPZA ER [Suspect]
     Active Substance: OXYCODONE
     Indication: PAIN
     Dosage: 36 MG, ONCE
     Route: 048
     Dates: start: 202101, end: 202101
  9. PREDNISONE. [Concomitant]
     Active Substance: PREDNISONE
  10. ASPIRIN. [Concomitant]
     Active Substance: ASPIRIN
  11. MELOXICAM. [Concomitant]
     Active Substance: MELOXICAM
  12. FUROSEMIDE. [Concomitant]
     Active Substance: FUROSEMIDE
  13. CYMBALTA [Concomitant]
     Active Substance: DULOXETINE HYDROCHLORIDE

REACTIONS (3)
  - Drug intolerance [Recovered/Resolved]
  - Product substitution issue [Recovered/Resolved]
  - Sepsis [Recovered/Resolved]

NARRATIVE: CASE EVENT DATE: 202101
